FAERS Safety Report 17447124 (Version 1)
Quarter: 2020Q1

REPORT INFORMATION
  Report Type: Spontaneous
  Country: SG (occurrence: SG)
  Receive Date: 20200221
  Receipt Date: 20200221
  Transmission Date: 20200409
  Serious: Yes (Other)
  Sender: FDA-Public Use
  Company Number: SG-VIIV HEALTHCARE LIMITED-SG2020GSK027879

PATIENT
  Age: 79 Year
  Sex: Male

DRUGS (10)
  1. VALACICLOVIR [Suspect]
     Active Substance: VALACYCLOVIR HYDROCHLORIDE
     Indication: SCROTAL ULCER
     Dosage: UNK HIGH-DOSE
     Route: 048
  2. DARUNAVIR [Suspect]
     Active Substance: DARUNAVIR
     Indication: HIV INFECTION
     Dosage: UNK
  3. VALACICLOVIR [Suspect]
     Active Substance: VALACYCLOVIR HYDROCHLORIDE
     Indication: HERPES SIMPLEX
     Dosage: UNK 0.5-1 G TWICE DAILY
     Route: 048
  4. LAMIVUDINE. [Suspect]
     Active Substance: LAMIVUDINE
     Indication: HIV INFECTION
     Dosage: UNK
  5. FOSCARNET [Suspect]
     Active Substance: FOSCARNET
     Indication: HERPES SIMPLEX
     Dosage: UNK 1.5-1.8 G DAILY
     Route: 042
  6. FOSCARNET [Suspect]
     Active Substance: FOSCARNET
     Dosage: UNK
     Route: 042
  7. IMIQUIMOD. [Concomitant]
     Active Substance: IMIQUIMOD
     Indication: HERPES SIMPLEX
     Dosage: 2 G, QD
     Route: 061
  8. FOSCARNET [Suspect]
     Active Substance: FOSCARNET
     Indication: SCROTAL ULCER
     Dosage: UNK
     Route: 042
  9. TENOFOVIR DISOPROXIL FUMARATE. [Suspect]
     Active Substance: TENOFOVIR DISOPROXIL FUMARATE
     Indication: HIV INFECTION
     Dosage: UNK
  10. IMIQUIMOD. [Concomitant]
     Active Substance: IMIQUIMOD
     Indication: SCROTAL ULCER

REACTIONS (7)
  - Condition aggravated [Unknown]
  - Drug ineffective [Unknown]
  - Pathogen resistance [Unknown]
  - Viral mutation identified [Unknown]
  - Multiple-drug resistance [Unknown]
  - Immune reconstitution inflammatory syndrome [Unknown]
  - Genital ulceration [Unknown]
